FAERS Safety Report 6264994-4 (Version None)
Quarter: 2009Q3

REPORT INFORMATION
  Report Type: 
  Country: None (occurrence: None)
  Receive Date: 20090709
  Receipt Date: 20090709
  Transmission Date: 20100115
  Serious: Yes (Disabling, Other)
  Sender: FDA-Public Use
  Company Number: None

PATIENT
  Age: 91 Year
  Sex: Female
  Weight: 40.8237 kg

DRUGS (1)
  1. ATIVAN [Suspect]
     Indication: NERVOUSNESS
     Dosage: 1-05 MG 4-6 HRS PRN ORAL
     Route: 048
     Dates: start: 20090316, end: 20090513

REACTIONS (4)
  - FACIAL BONES FRACTURE [None]
  - FALL [None]
  - HAEMATOMA [None]
  - INCONTINENCE [None]
